FAERS Safety Report 6236427-5 (Version None)
Quarter: 2009Q2

REPORT INFORMATION
  Report Type: 
  Country: None (occurrence: None)
  Receive Date: 20090617
  Receipt Date: 20090605
  Transmission Date: 20091009
  Serious: Yes (Other)
  Sender: FDA-Public Use
  Company Number: 2009US-24618

PATIENT
  Age: 24 Year
  Sex: Female

DRUGS (2)
  1. ISOTRETINOIN [Suspect]
     Indication: ACNE
     Dosage: 30 MG, QD ALTERNATING, ORAL, 30 MG, BID ALTERNATING
     Route: 048
     Dates: start: 20080825, end: 20090401
  2. ISOTRETINOIN [Suspect]
     Indication: ACNE
     Dosage: 40 MG, ORAL
     Route: 048

REACTIONS (2)
  - DRUG EXPOSURE BEFORE PREGNANCY [None]
  - PREGNANCY [None]
